FAERS Safety Report 25196286 (Version 1)
Quarter: 2025Q2

REPORT INFORMATION
  Report Type: Spontaneous
  Country: US (occurrence: US)
  Receive Date: 20250415
  Receipt Date: 20250415
  Transmission Date: 20250717
  Serious: No
  Sender: TAKEDA
  Company Number: US-TAKEDA-2025TUS035613

PATIENT
  Sex: Female
  Weight: 22 kg

DRUGS (1)
  1. MOTEGRITY [Suspect]
     Active Substance: PRUCALOPRIDE SUCCINATE
     Indication: Mobility decreased
     Dosage: 1 MILLIGRAM, QD

REACTIONS (2)
  - No adverse event [Unknown]
  - Product prescribing issue [Unknown]
